FAERS Safety Report 12138669 (Version 2)
Quarter: 2016Q1

REPORT INFORMATION
  Report Type: Spontaneous
  Country: FR (occurrence: FR)
  Receive Date: 20160302
  Receipt Date: 20160323
  Transmission Date: 20160526
  Serious: Yes (Hospitalization)
  Sender: FDA-Public Use
  Company Number: FR-TEVA-636920ISR

PATIENT
  Age: 17 Year
  Sex: Male

DRUGS (14)
  1. ETOPOSIDE TEVA [Suspect]
     Active Substance: ETOPOSIDE
     Route: 042
     Dates: start: 20150515
  2. CISPLATINE [Concomitant]
     Active Substance: CISPLATIN
     Dates: start: 20150612
  3. SPASFON [Concomitant]
     Active Substance: PHLOROGLUCINOL
     Dosage: 120 MILLIGRAM DAILY; ADMINISTERED ON DAYS 1, 2 AND 3 OF EACH COURSE OF CHEMOTHERAPY
     Route: 042
  4. IFOSFAMIDE EG [Suspect]
     Active Substance: IFOSFAMIDE
     Route: 042
     Dates: start: 20150515, end: 20151229
  5. BACTRIM [Concomitant]
     Active Substance: SULFAMETHOXAZOLE\TRIMETHOPRIM
     Dosage: 800 MILLIGRAM DAILY; 3 DAYS PER WEEK
     Route: 048
  6. ONDANSETRON [Concomitant]
     Active Substance: ONDANSETRON
     Dosage: ADMINISTRATION ON DAYS 1, 2 AND 3 OF EACH COURSE OF CHEMOTHERAPY
     Route: 042
  7. ADRIBLASTINE [Concomitant]
     Active Substance: DOXORUBICIN
     Dates: start: 20150612
  8. HYDROXYZINE (CHLORHYDRATE D^) [Concomitant]
     Active Substance: HYDROXYZINE HYDROCHLORIDE
     Dosage: ADMINISTRATION ON DAYS 1, 2 AND 3 OF EACH COURSE OF CHEMOTHERAPY
     Route: 042
  9. METHYLENE BLUE. [Concomitant]
     Active Substance: METHYLENE BLUE
     Dosage: ADMINISTRATION ON DAYS 1, 2 AND 3 OF EACH COURSE OF CHEMOTHERAPY
     Route: 042
  10. METHYLPREDNISOLONE. [Concomitant]
     Active Substance: METHYLPREDNISOLONE
     Dosage: 90 MILLIGRAM DAILY; ADMINISTRATION ON DAYS 1, 2 AND 3 OF EACH COURSE OF CHEMOTHERAPY
     Route: 042
  11. PANTOPRAZOLE [Concomitant]
     Active Substance: PANTOPRAZOLE SODIUM
     Dosage: DURING SEVERAL MONTHS
     Route: 048
  12. LYRICA [Concomitant]
     Active Substance: PREGABALIN
     Dosage: 100 MILLIGRAM DAILY;
     Route: 048
     Dates: start: 20151010
  13. PANTOPRAZOLE [Concomitant]
     Active Substance: PANTOPRAZOLE SODIUM
     Dosage: 40 MILLIGRAM DAILY;
     Route: 048
     Dates: start: 20151030
  14. TERCIAN [Concomitant]
     Active Substance: CYAMEMAZINE
     Dosage: 15 GTT DAILY;
     Route: 048
     Dates: start: 20151019

REACTIONS (2)
  - Pancytopenia [Recovered/Resolved]
  - Renal tubular disorder [Recovering/Resolving]

NARRATIVE: CASE EVENT DATE: 20151119
